FAERS Safety Report 4922268-5 (Version None)
Quarter: 2006Q1

REPORT INFORMATION
  Report Type: 
  Country: None (occurrence: None)
  Receive Date: 20060224
  Receipt Date: 20051005
  Transmission Date: 20060701
  Serious: Yes (Hospitalization)
  Sender: FDA-Public Use
  Company Number: US-MERCK-0510USA03829

PATIENT
  Age: 70 Year
  Sex: Female
  Weight: 57 kg

DRUGS (16)
  1. VYTORIN [Concomitant]
     Indication: HYPERLIPIDAEMIA
     Route: 048
     Dates: start: 20050207
  2. VYTORIN [Concomitant]
     Route: 048
     Dates: start: 20050207
  3. PROZAC [Concomitant]
     Route: 048
     Dates: start: 19850101
  4. ZOCOR [Concomitant]
     Indication: BLOOD CHOLESTEROL
     Route: 048
  5. ASPIRIN [Concomitant]
     Indication: ISCHAEMIC HEART DISEASE PROPHYLAXIS
     Route: 048
  6. ASPIRIN [Concomitant]
     Route: 048
  7. ASPIRIN [Concomitant]
     Route: 048
     Dates: start: 20040101, end: 20050101
  8. ZETIA [Concomitant]
     Indication: HYPERLIPIDAEMIA
     Route: 048
  9. ZETIA [Concomitant]
     Route: 048
     Dates: start: 20040308
  10. TOPROL-XL [Concomitant]
     Route: 048
     Dates: start: 20050101
  11. ALEVE [Concomitant]
     Indication: PAIN IN EXTREMITY
     Route: 048
     Dates: start: 20051201, end: 20051201
  12. COZAAR [Concomitant]
     Indication: HYPERTENSION
     Route: 048
     Dates: start: 20040628
  13. COZAAR [Concomitant]
     Route: 048
     Dates: start: 20040628
  14. VIOXX [Suspect]
     Indication: MONARTHRITIS
     Route: 048
     Dates: start: 20010718, end: 20041001
  15. VIOXX [Suspect]
     Route: 048
     Dates: start: 20010718, end: 20041001
  16. SYNTHROID [Concomitant]
     Route: 048

REACTIONS (17)
  - AORTIC VALVE SCLEROSIS [None]
  - CHEST PAIN [None]
  - CONSTIPATION [None]
  - COUGH [None]
  - DYSPNOEA [None]
  - ECCHYMOSIS [None]
  - FATIGUE [None]
  - FEELING COLD [None]
  - HOT FLUSH [None]
  - HYPERTENSION [None]
  - MITRAL VALVE INCOMPETENCE [None]
  - MITRAL VALVE SCLEROSIS [None]
  - MUSCULOSKELETAL DISCOMFORT [None]
  - MYOCARDIAL ISCHAEMIA [None]
  - STENT PLACEMENT [None]
  - TRICUSPID VALVE INCOMPETENCE [None]
  - UPPER RESPIRATORY TRACT INFECTION [None]
